FAERS Safety Report 11156834 (Version 1)
Quarter: 2015Q2

REPORT INFORMATION
  Report Type: Report from Study
  Country: US (occurrence: US)
  Receive Date: 20150602
  Receipt Date: 20150602
  Transmission Date: 20150821
  Serious: Yes (Other)
  Sender: FDA-Public Use
  Company Number: US-BAYER-2015-008765

PATIENT
  Age: 53 Year
  Sex: Male

DRUGS (2)
  1. STIVARGA [Suspect]
     Active Substance: REGORAFENIB
     Indication: COLON CANCER
     Dosage: 80 MG, DAILY
     Route: 048
     Dates: start: 20150114
  2. STIVARGA [Suspect]
     Active Substance: REGORAFENIB
     Indication: COLON CANCER
     Dosage: 80MG, DAILY DOSE
     Route: 048
     Dates: start: 20141223

REACTIONS (9)
  - Erythema [Not Recovered/Not Resolved]
  - Dry skin [Not Recovered/Not Resolved]
  - Musculoskeletal discomfort [Recovered/Resolved]
  - Therapeutic response unexpected [None]
  - Musculoskeletal discomfort [Not Recovered/Not Resolved]
  - Blood magnesium decreased [None]
  - Dyspnoea [Recovering/Resolving]
  - Blood magnesium decreased [None]
  - Dermatitis acneiform [Recovered/Resolved]

NARRATIVE: CASE EVENT DATE: 20150115
